FAERS Safety Report 9171741 (Version 1)
Quarter: 2013Q1

REPORT INFORMATION
  Report Type: Spontaneous
  Country: US (occurrence: None)
  Receive Date: 20130313
  Receipt Date: 20130313
  Transmission Date: 20140127
  Serious: Yes (Other)
  Sender: FDA-Public Use
  Company Number: 2013P1002948

PATIENT
  Age: 48 Year
  Sex: Female

DRUGS (2)
  1. INFUMORPH [Suspect]
     Dosage: 0.96  MG;  QD;?UNKNOWN  -  UNKNOWN?UNKNOWN  -  PRESENT
  2. BUPIVACAINE [Suspect]
     Dosage: 0.048  MG;  QD;?UNKNOWN  -  UNKNOWN

REACTIONS (4)
  - Withdrawal syndrome [None]
  - Device connection issue [None]
  - Device occlusion [None]
  - Device breakage [None]
